FAERS Safety Report 13116703 (Version 10)
Quarter: 2020Q2

REPORT INFORMATION
  Report Type: Report from Study
  Country: DE (occurrence: DE)
  Receive Date: 20170116
  Receipt Date: 20200505
  Transmission Date: 20200713
  Serious: Yes (Other)
  Sender: FDA-Public Use
  Company Number: DE-ROCHE-1829713

PATIENT
  Age: 77 Year
  Sex: Male

DRUGS (9)
  1. FALITHROM [Concomitant]
     Active Substance: PHENPROCOUMON
  2. TORASEMID [Concomitant]
     Active Substance: TORSEMIDE
     Route: 065
  3. ESBRIET [Suspect]
     Active Substance: PIRFENIDONE
     Indication: IDIOPATHIC PULMONARY FIBROSIS
     Dosage: DAILY DOSE: 2403 MG MILLIGRAM(S) EVERY DAY
     Route: 048
     Dates: start: 20160701
  4. RAMIPRIL. [Concomitant]
     Active Substance: RAMIPRIL
  5. MORPHINE [Suspect]
     Active Substance: MORPHINE
     Indication: SPINAL PAIN
     Route: 065
  6. ESBRIET [Suspect]
     Active Substance: PIRFENIDONE
     Indication: IDIOPATHIC PULMONARY FIBROSIS
     Route: 048
     Dates: start: 201707
  7. CLOPIDOGREL [Concomitant]
     Active Substance: CLOPIDOGREL BISULFATE
     Route: 065
  8. METFORMIN [Concomitant]
     Active Substance: METFORMIN HYDROCHLORIDE
     Route: 048
  9. AMLODIPINE [Concomitant]
     Active Substance: AMLODIPINE BESYLATE
     Route: 065

REACTIONS (11)
  - Feeling abnormal [Recovered/Resolved]
  - International normalised ratio decreased [Recovered/Resolved]
  - Dyspepsia [Recovered/Resolved]
  - Coronary artery stenosis [Unknown]
  - Abdominal discomfort [Recovered/Resolved]
  - Dyspepsia [Unknown]
  - Dyspnoea exertional [Not Recovered/Not Resolved]
  - Gastrooesophageal reflux disease [Not Recovered/Not Resolved]
  - Spinal pain [Not Recovered/Not Resolved]
  - Haematoma [Recovered/Resolved]
  - Prothrombin time prolonged [Unknown]

NARRATIVE: CASE EVENT DATE: 201608
